FAERS Safety Report 7377352-6 (Version None)
Quarter: 2011Q1

REPORT INFORMATION
  Report Type: 
  Country: None (occurrence: None)
  Receive Date: 20110328
  Receipt Date: 20110322
  Transmission Date: 20110831
  Serious: Yes (Death, Hospitalization, Other)
  Sender: FDA-Public Use
  Company Number: US-AMGEN-USASP2011011851

PATIENT
  Age: 33 Year
  Sex: Male

DRUGS (33)
  1. NPLATE [Suspect]
     Dates: start: 20110217, end: 20110217
  2. LOPINAVIR/RITONAVIR [Concomitant]
     Dosage: UNK UNK, Q12H
  3. FLUCONAZOLE [Concomitant]
  4. PREDNISONE [Concomitant]
  5. LEVALBUTEROL HYDROCHLORIDE [Concomitant]
  6. ATOVAQUONE [Concomitant]
  7. DOCUSATE SODIUM [Concomitant]
  8. NPLATE [Suspect]
     Indication: PRODUCT USED FOR UNKNOWN INDICATION
     Dosage: 70 A?G, UNK
     Route: 058
     Dates: start: 20110217, end: 20110217
  9. CIPROFLOXACIN [Concomitant]
     Dosage: UNK UNK, ONE TIME DOSE
  10. EMTRICITABINE W/TENOFOVIR [Concomitant]
  11. LAMIVUDINE [Concomitant]
  12. EPINEPHRINE [Concomitant]
  13. HYDROCORTISONE SODIUM SUCCINATE [Concomitant]
  14. FUROSEMIDE [Concomitant]
  15. LORAZEPAM [Concomitant]
  16. SODIUM CHLORIDE [Concomitant]
  17. DIPHENHYDRAMINE HCL [Concomitant]
  18. FILGRASTIM [Concomitant]
     Dosage: 480 A?G, QD
     Route: 058
     Dates: start: 20110224
  19. ZOLPIDEM TARTRATE [Concomitant]
     Dosage: UNK UNK, QHS
  20. CEFTAZIDIME [Concomitant]
     Dosage: UNK UNK, ONE TIME DOSE
  21. ALBUTEROL SULFATE [Concomitant]
  22. METOCLOPRAMIDE [Concomitant]
  23. ZIDOVUDINE W/DIDANOSINE [Concomitant]
     Dosage: UNK UNK, Q12H
  24. METHYLPREDNISOLONE SODIUM SUCCINATE [Concomitant]
  25. PACLITAXEL [Concomitant]
  26. RANITIDINE [Concomitant]
  27. PIPERACILLIN W/ TAZOBACTAM SANDOZ [Concomitant]
  28. FAMCICLOVIR [Concomitant]
     Dosage: UNK UNK, Q12H
  29. AZITHROMYCIN [Concomitant]
     Dosage: UNK UNK, QD
  30. CEFTRIAXONE SODIUM [Concomitant]
  31. PANTOPRAZOLE SODIUM [Concomitant]
     Dosage: UNK UNK, QD
  32. TENOFOVIR DISOPROXIL FUMARATE [Concomitant]
  33. SENNOSIDE A+B [Concomitant]

REACTIONS (12)
  - NON-HODGKIN'S LYMPHOMA [None]
  - RALES [None]
  - PRODUCTIVE COUGH [None]
  - RHONCHI [None]
  - PANCYTOPENIA [None]
  - PNEUMOCYSTIS JIROVECI PNEUMONIA [None]
  - KAPOSI'S SARCOMA [None]
  - TACHYCARDIA [None]
  - DEHYDRATION [None]
  - ANAEMIA [None]
  - ANAL HAEMORRHAGE [None]
  - THROMBOCYTOPENIA [None]
